FAERS Safety Report 25550509 (Version 1)
Quarter: 2025Q3

REPORT INFORMATION
  Report Type: Spontaneous
  Country: US (occurrence: US)
  Receive Date: 20250714
  Receipt Date: 20250714
  Transmission Date: 20251020
  Serious: No
  Sender: SANOFI AVENTIS
  Company Number: US-SA-2025SA196798

PATIENT
  Age: 59 Year
  Sex: Female
  Weight: 72.45 kg

DRUGS (1)
  1. KEVZARA [Suspect]
     Active Substance: SARILUMAB
     Indication: Polymyalgia rheumatica
     Dosage: UNK, QOW
     Route: 058
     Dates: end: 2025

REACTIONS (2)
  - Tooth extraction [Not Recovered/Not Resolved]
  - Dacryocanaliculitis [Unknown]

NARRATIVE: CASE EVENT DATE: 20250101
